FAERS Safety Report 12072797 (Version 1)
Quarter: 2016Q1

REPORT INFORMATION
  Report Type: Spontaneous
  Country: US (occurrence: None)
  Receive Date: 20160211
  Receipt Date: 20160211
  Transmission Date: 20160526
  Serious: No
  Sender: FDA-Public Use
  Company Number: None

PATIENT
  Age: 23 Year
  Sex: Female

DRUGS (1)
  1. BENLYSTA [Suspect]
     Active Substance: BELIMUMAB
     Indication: MALAISE
     Dosage: 800 MG, EVERY 4 WEEKS, INTRAVENOUSLY
     Route: 042
     Dates: start: 20151229, end: 20160201

REACTIONS (5)
  - Dizziness [None]
  - Irritability [None]
  - Pruritus [None]
  - Pollakiuria [None]
  - Headache [None]

NARRATIVE: CASE EVENT DATE: 20160201
